FAERS Safety Report 21246356 (Version 1)
Quarter: 2022Q3

REPORT INFORMATION
  Report Type: Report from Study
  Country: US (occurrence: US)
  Receive Date: 20220824
  Receipt Date: 20220824
  Transmission Date: 20221027
  Serious: Yes (Other)
  Sender: FDA-Public Use
  Company Number: US-NOVARTISPH-NVSC2022US187335

PATIENT
  Sex: Female

DRUGS (2)
  1. ENTRESTO [Suspect]
     Active Substance: SACUBITRIL\VALSARTAN
     Indication: Product used for unknown indication
     Dosage: 1 DOSAGE FORM, BID
     Route: 048
     Dates: start: 202112
  2. ENTRESTO [Suspect]
     Active Substance: SACUBITRIL\VALSARTAN
     Dosage: 1.5 DOSAGE FORM (HALF TABLET IN THE MORNING AND A FULL TABLET AT NIGHT)
     Route: 065

REACTIONS (7)
  - Syncope [Recovered/Resolved]
  - Fluid retention [Not Recovered/Not Resolved]
  - Abdominal distension [Not Recovered/Not Resolved]
  - Blood pressure decreased [Recovered/Resolved]
  - Cough [Unknown]
  - Dizziness [Recovered/Resolved]
  - Wrong technique in product usage process [Unknown]
